FAERS Safety Report 6251947-5 (Version None)
Quarter: 2009Q2

REPORT INFORMATION
  Report Type: 
  Country: None (occurrence: None)
  Receive Date: 20090630
  Receipt Date: 20090617
  Transmission Date: 20091009
  Serious: Yes (Other)
  Sender: FDA-Public Use
  Company Number: FR-PFIZER INC-2009227994

PATIENT
  Age: 58 Year

DRUGS (2)
  1. SALAZOPYRIN [Suspect]
     Indication: PSORIATIC ARTHROPATHY
     Dosage: 500 MG, 4X/DAY
     Route: 048
     Dates: start: 20081224, end: 20090423
  2. DAIVONEX [Suspect]
     Indication: PSORIASIS
     Dosage: 1 DF, 2X/DAY
     Route: 003
     Dates: start: 20081224, end: 20090415

REACTIONS (2)
  - GLOMERULONEPHRITIS [None]
  - RENAL TUBULAR DISORDER [None]
